FAERS Safety Report 24885421 (Version 1)
Quarter: 2025Q1

REPORT INFORMATION
  Report Type: Spontaneous
  Country: CN (occurrence: CN)
  Receive Date: 20250124
  Receipt Date: 20250124
  Transmission Date: 20250409
  Serious: Yes (Other)
  Sender: MERCK
  Company Number: CN-009507513-2501CHN006693

PATIENT
  Age: 68 Year
  Sex: Female

DRUGS (2)
  1. CILASTATIN SODIUM\IMIPENEM [Suspect]
     Active Substance: CILASTATIN SODIUM\IMIPENEM
     Indication: Anti-infective therapy
     Dosage: 0.5 G, Q6H
     Route: 041
     Dates: start: 20241216, end: 20241225
  2. HERBALS [Concomitant]
     Active Substance: HERBALS
     Indication: Antiinflammatory therapy
     Dosage: 5 VIAL, TID
     Route: 041
     Dates: start: 20241217, end: 20241225

REACTIONS (1)
  - Epilepsy [Recovering/Resolving]

NARRATIVE: CASE EVENT DATE: 20241224
